FAERS Safety Report 6613936-8 (Version None)
Quarter: 2010Q1

REPORT INFORMATION
  Report Type: 
  Country: None (occurrence: None)
  Receive Date: 20100304
  Receipt Date: 20100225
  Transmission Date: 20100710
  Serious: Yes (Other)
  Sender: FDA-Public Use
  Company Number: B0635884A

PATIENT
  Age: 57 Year
  Sex: Male

DRUGS (5)
  1. EPIVIR [Suspect]
     Indication: DRUG USE FOR UNKNOWN INDICATION
     Route: 048
  2. ZIAGEN [Suspect]
     Indication: DRUG USE FOR UNKNOWN INDICATION
     Route: 048
  3. NORVIR [Concomitant]
     Route: 048
  4. REYATAZ [Concomitant]
     Route: 048
  5. EPOGIN [Concomitant]

REACTIONS (1)
  - ANAEMIA [None]
